FAERS Safety Report 12693266 (Version 3)
Quarter: 2017Q1

REPORT INFORMATION
  Report Type: Report from Study
  Country: BR (occurrence: BR)
  Receive Date: 20160829
  Receipt Date: 20170328
  Transmission Date: 20170428
  Serious: Yes (Other)
  Sender: FDA-Public Use
  Company Number: BR-GLAXOSMITHKLINE-BR2015GSK134536

PATIENT
  Sex: Female
  Weight: 67 kg

DRUGS (1)
  1. BELIMUMAB [Suspect]
     Active Substance: BELIMUMAB
     Indication: SYSTEMIC LUPUS ERYTHEMATOSUS
     Dosage: UNK
     Dates: start: 20150220

REACTIONS (7)
  - Drug dose omission [Unknown]
  - Medication error [Unknown]
  - Circumstance or information capable of leading to medication error [Unknown]
  - Decreased immune responsiveness [Unknown]
  - Infection [Unknown]
  - Skin disorder [Unknown]
  - Inappropriate schedule of drug administration [Not Recovered/Not Resolved]
